FAERS Safety Report 14601715 (Version 4)
Quarter: 2020Q3

REPORT INFORMATION
  Report Type: Report from Study
  Country: FR (occurrence: FR)
  Receive Date: 20180306
  Receipt Date: 20180524
  Transmission Date: 20201105
  Serious: Yes (Hospitalization)
  Sender: FDA-Public Use
  Company Number: FR-ROCHE-2060453

PATIENT
  Age: 50 Year
  Sex: Female
  Weight: 55 kg

DRUGS (4)
  1. ATEZOLIZUMAB. [Suspect]
     Active Substance: ATEZOLIZUMAB
     Indication: NEOPLASM
     Dosage: DATE OF MOST RECENT DOSE PRIOR TO EVENT (BALANCE DISORDER) ? 21/DEC/2017?DATE OF MOST RECENT DOSE PR
     Route: 042
     Dates: start: 20170517
  2. FOLIC ACID. [Concomitant]
     Active Substance: FOLIC ACID
     Indication: PROPHYLAXIS
     Route: 048
     Dates: start: 20180328, end: 20180425
  3. NAVOXIMOD. [Suspect]
     Active Substance: NAVOXIMOD
     Indication: NEOPLASM
     Dosage: DATE OF MOST RECENT DOSE PRIOR TO EVENTS ? 14/JUN/2017, 1000MG
     Route: 048
     Dates: start: 20170516
  4. KETOPROFEN. [Concomitant]
     Active Substance: KETOPROFEN
     Indication: HEADACHE
     Route: 048
     Dates: start: 20180104

REACTIONS (2)
  - Balance disorder [Recovered/Resolved]
  - Sjogren^s syndrome [Recovered/Resolved]

NARRATIVE: CASE EVENT DATE: 20171221
